FAERS Safety Report 15370953 (Version 1)
Quarter: 2018Q3

REPORT INFORMATION
  Report Type: Spontaneous
  Country: US (occurrence: US)
  Receive Date: 20180911
  Receipt Date: 20180911
  Transmission Date: 20181010
  Serious: No
  Sender: FDA-Public Use
  Company Number: US-SA-2018SA252312

PATIENT
  Age: 1 Year
  Sex: Male

DRUGS (1)
  1. ALLEGRA [Suspect]
     Active Substance: FEXOFENADINE HYDROCHLORIDE
     Dosage: UNK UNK, BID
     Dates: start: 20180831

REACTIONS (5)
  - Eczema [Unknown]
  - Unevaluable event [Unknown]
  - Rash [Unknown]
  - Therapeutic response decreased [Unknown]
  - Hypersensitivity [Unknown]

NARRATIVE: CASE EVENT DATE: 20180904
